FAERS Safety Report 8407252-1 (Version None)
Quarter: 2012Q2

REPORT INFORMATION
  Report Type: 
  Country: None (occurrence: None)
  Receive Date: 20120604
  Receipt Date: 20120529
  Transmission Date: 20120825
  Serious: Yes (Death)
  Sender: FDA-Public Use
  Company Number: US-ROCHE-1071297

PATIENT
  Sex: Female
  Weight: 33.959 kg

DRUGS (14)
  1. NUTROPIN AQ [Suspect]
     Indication: GROWTH HORMONE DEFICIENCY
     Route: 058
     Dates: start: 20010322, end: 20120309
  2. PULMICORT [Suspect]
     Indication: ASTHMA
     Route: 055
  3. ALBUTEROL [Concomitant]
  4. REGLAN [Concomitant]
     Indication: VOMITING
  5. CORTEF [Suspect]
     Indication: BLOOD CORTICOTROPHIN DECREASED
     Dosage: ROUTE G TUBE
     Route: 048
  6. HYDROCORTISONE [Concomitant]
  7. MIRALAX [Concomitant]
  8. PREVACID [Concomitant]
  9. MOTRIN [Concomitant]
     Indication: PAIN
  10. VITAMIN TAB [Concomitant]
  11. SOLU-CORTEF INJECTABLE [Concomitant]
     Indication: PYREXIA
  12. CYCLOPROPANE [Concomitant]
     Dosage: REPORTED AS MICLOPROPAN
  13. POLY-VI-FLOR [Concomitant]
  14. ERYPED [Concomitant]

REACTIONS (1)
  - RESPIRATORY ARREST [None]
